FAERS Safety Report 10595899 (Version 2)
Quarter: 2014Q4

REPORT INFORMATION
  Report Type: Spontaneous
  Country: AR (occurrence: AR)
  Receive Date: 20141120
  Receipt Date: 20141120
  Transmission Date: 20150529
  Serious: Yes (Other)
  Sender: FDA-Public Use
  Company Number: AR-ELI_LILLY_AND_COMPANY-AR201408010615

PATIENT
  Age: 56 Year
  Sex: Female

DRUGS (2)
  1. HUMULIN R [Suspect]
     Active Substance: INSULIN HUMAN
     Indication: PRODUCT USED FOR UNKNOWN INDICATION
     Dosage: UNK
     Route: 065
     Dates: start: 2006, end: 201408
  2. HUMULIN N [Suspect]
     Active Substance: INSULIN HUMAN
     Indication: PRODUCT USED FOR UNKNOWN INDICATION
     Dosage: 70 U, QD
     Route: 065
     Dates: start: 2008, end: 201408

REACTIONS (10)
  - Hypoglycaemia [Unknown]
  - Weight decreased [Recovered/Resolved]
  - Malaise [Unknown]
  - Kidney infection [Unknown]
  - Retinopathy [Recovered/Resolved]
  - Bronchitis [Unknown]
  - Hyperglycaemia [Unknown]
  - Ketoacidosis [Recovered/Resolved]
  - Eye injury [Recovered/Resolved]
  - Headache [Unknown]

NARRATIVE: CASE EVENT DATE: 201308
